FAERS Safety Report 16853708 (Version 1)
Quarter: 2019Q4

REPORT INFORMATION
  Report Type: Spontaneous
  Country: US (occurrence: US)
  Receive Date: 20190925
  Receipt Date: 20190925
  Transmission Date: 20200122
  Serious: Yes (Life-Threatening, Hospitalization)
  Sender: FDA-Public Use
  Company Number: None

PATIENT
  Sex: Female

DRUGS (2)
  1. INSULIN DETEMIR [Suspect]
     Active Substance: INSULIN DETEMIR
  2. INSULIN ASPART [Suspect]
     Active Substance: INSULIN ASPART

REACTIONS (1)
  - Blood glucose decreased [None]
